FAERS Safety Report 4453050-3 (Version None)
Quarter: 2004Q3

REPORT INFORMATION
  Report Type: 
  Country: None (occurrence: None)
  Receive Date: 20040916
  Receipt Date: 20040916
  Transmission Date: 20050211
  Serious: Yes (Hospitalization)
  Sender: FDA-Public Use
  Company Number: None

PATIENT
  Age: 59 Year
  Sex: Female
  Weight: 76.2043 kg

DRUGS (4)
  1. TAXOTERE [Suspect]
     Indication: BREAST CANCER
     Dosage: 100 MG/M2 IV Q 2 WEEKS
     Route: 042
     Dates: start: 20040505
  2. TAXOTERE [Suspect]
     Indication: BREAST CANCER
     Dosage: 100 MG/M2 IV Q 2 WEEKS
     Route: 042
     Dates: start: 20040519
  3. TAXOTERE [Suspect]
     Indication: BREAST CANCER
     Dosage: 100 MG/M2 IV Q 2 WEEKS
     Route: 042
     Dates: start: 20040602
  4. TAXOTERE [Suspect]
     Indication: BREAST CANCER
     Dosage: 100 MG/M2 IV Q 2 WEEKS
     Route: 042
     Dates: start: 20040625

REACTIONS (4)
  - CHEST PAIN [None]
  - FLATULENCE [None]
  - METASTASIS [None]
  - PERICARDIAL EFFUSION [None]
